FAERS Safety Report 25236805 (Version 2)
Quarter: 2025Q3

REPORT INFORMATION
  Report Type: Spontaneous
  Country: US (occurrence: US)
  Receive Date: 20250424
  Receipt Date: 20250702
  Transmission Date: 20251021
  Serious: No
  Sender: TEVA
  Company Number: US-TEVA-VS-3322175

PATIENT
  Age: 75 Year
  Sex: Female

DRUGS (2)
  1. AJOVY [Suspect]
     Active Substance: FREMANEZUMAB-VFRM
     Indication: Migraine without aura
     Dosage: STRENGTH: 225 MG / 1.5 ML
     Route: 058
  2. DEVICE [Suspect]
     Active Substance: DEVICE
     Route: 065

REACTIONS (4)
  - Accidental exposure to product [Unknown]
  - Product use issue [Unknown]
  - Skin burning sensation [Unknown]
  - Device malfunction [Unknown]

NARRATIVE: CASE EVENT DATE: 20250101
